FAERS Safety Report 8621665-4 (Version None)
Quarter: 2012Q3

REPORT INFORMATION
  Report Type: 
  Country: None (occurrence: None)
  Receive Date: 20120821
  Receipt Date: 20120821
  Transmission Date: 20120928
  Serious: Yes (Other)
  Sender: FDA-Public Use
  Company Number: None

PATIENT
  Sex: Female

DRUGS (5)
  1. DIGESTIVE ENZYMES [Concomitant]
  2. WARFARIN  5MG  UNKNOWN [Suspect]
     Indication: DEEP VEIN THROMBOSIS
     Dosage: 5MG ONCE DAILY PO
     Route: 048
     Dates: start: 20120801, end: 20120802
  3. IRON, B-COMPLEX [Concomitant]
  4. MULTI-VITAMIN [Concomitant]
  5. FLUCONAZOLE [Suspect]
     Indication: VULVOVAGINAL MYCOTIC INFECTION
     Dosage: 150MG  2 DAY1, 1 DAY 2  PO
     Route: 048
     Dates: start: 20120801, end: 20120802

REACTIONS (2)
  - VULVOVAGINAL MYCOTIC INFECTION [None]
  - INTERNATIONAL NORMALISED RATIO INCREASED [None]
